FAERS Safety Report 6122092-4 (Version None)
Quarter: 2009Q1

REPORT INFORMATION
  Report Type: 
  Country: None (occurrence: None)
  Receive Date: 20090316
  Receipt Date: 20090316
  Transmission Date: 20090719
  Serious: Yes (Hospitalization)
  Sender: FDA-Public Use
  Company Number: None

PATIENT
  Age: 48 Year
  Sex: Female
  Weight: 68 kg

DRUGS (5)
  1. TEMODAR [Suspect]
     Indication: OLIGODENDROGLIOMA
     Dosage: 350MG PO X 5 DAYS Q28
     Route: 048
     Dates: start: 20090222, end: 20090226
  2. TOPOTECAN 2.3MG/M2 ON DAYS 2 - 6 OF 28 DAY CYCLE [Suspect]
     Indication: OLIGODENDROGLIOMA
     Dosage: 4MG PO X 5 DAYS Q28
     Route: 048
     Dates: start: 20090223, end: 20090227
  3. TEGRETOL [Concomitant]
  4. KEFLEX [Concomitant]
  5. ZOFRAN [Concomitant]

REACTIONS (8)
  - BRAIN NEOPLASM [None]
  - BRAIN OEDEMA [None]
  - DIARRHOEA [None]
  - FEBRILE NEUTROPENIA [None]
  - MENTAL STATUS CHANGES [None]
  - NEOPLASM PROGRESSION [None]
  - OEDEMA [None]
  - PANCYTOPENIA [None]
